FAERS Safety Report 10015062 (Version 2)
Quarter: 2014Q3

REPORT INFORMATION
  Report Type: Spontaneous
  Country: US (occurrence: US)
  Receive Date: 20140317
  Receipt Date: 20140915
  Transmission Date: 20150326
  Serious: Yes (Hospitalization)
  Sender: FDA-Public Use
  Company Number: US-SA-2014SA029831

PATIENT
  Age: 14 Year
  Sex: Male
  Weight: 49 kg

DRUGS (1)
  1. LANTUS [Suspect]
     Active Substance: INSULIN GLARGINE
     Indication: TYPE 1 DIABETES MELLITUS
     Dosage: DOSE-20 UNITS AT BEDTIME, 23U AT BEDTIME, 25U AT BEDTIME, 30 UNITS AT BEDTIME
     Route: 058
     Dates: start: 20140213, end: 20140216

REACTIONS (1)
  - Drug ineffective [Unknown]
